FAERS Safety Report 6608749-7 (Version None)
Quarter: 2010Q1

REPORT INFORMATION
  Report Type: 
  Country: None (occurrence: None)
  Receive Date: 20100301
  Receipt Date: 20100222
  Transmission Date: 20100710
  Serious: Yes (Death)
  Sender: FDA-Public Use
  Company Number: CHPA2010US03795

PATIENT
  Age: 28 Year
  Sex: Male

DRUGS (2)
  1. ACETAMINOPHEN (PARACETAMOL),ACETYLSAL ACID,CAFFEINE CITRATE (NCH) [Suspect]
     Dosage: UNK,UNK
     Route: 048
  2. CHLORPHENIRAMINE MALEATE [Suspect]
     Route: 048

REACTIONS (1)
  - COMPLETED SUICIDE [None]
